FAERS Safety Report 7204706-0 (Version None)
Quarter: 2010Q4

REPORT INFORMATION
  Report Type: 
  Country: None (occurrence: None)
  Receive Date: 20101230
  Receipt Date: 20101214
  Transmission Date: 20110411
  Serious: No
  Sender: FDA-Public Use
  Company Number: US-PFIZER INC-2010151003

PATIENT
  Age: 50 Year
  Sex: Male
  Weight: 83.9 kg

DRUGS (1)
  1. ALAVERT [Suspect]
     Indication: HYPERSENSITIVITY
     Dosage: UNK
     Route: 048
     Dates: start: 20101105, end: 20101101

REACTIONS (3)
  - GLOSSITIS [None]
  - PRODUCT QUALITY ISSUE [None]
  - SWOLLEN TONGUE [None]
